FAERS Safety Report 4360261-4 (Version None)
Quarter: 2004Q2

REPORT INFORMATION
  Report Type: 
  Country: None (occurrence: None)
  Receive Date: 20040513
  Receipt Date: 20040430
  Transmission Date: 20050107
  Serious: Yes (Hospitalization)
  Sender: FDA-Public Use
  Company Number: DSK-2004-03994

PATIENT
  Age: 70 Year
  Sex: Male

DRUGS (11)
  1. SALIGREN [Suspect]
     Indication: SJOGREN'S SYNDROME
     Dosage: 90 MG (30 MG, 3 IN 1 D) PER ORAL; 60 MG PER ORAL
     Route: 048
     Dates: start: 20030218, end: 20031021
  2. SALIGREN [Suspect]
     Indication: SJOGREN'S SYNDROME
     Dosage: 90 MG (30 MG, 3 IN 1 D) PER ORAL; 60 MG PER ORAL
     Route: 048
     Dates: start: 20031022, end: 20031201
  3. FLIVAS (NAFTOPIDIL) [Suspect]
     Indication: BENIGN PROSTATIC HYPERPLASIA
     Dosage: 50 MG PER ORAL
     Route: 048
     Dates: start: 20030117
  4. URSO [Concomitant]
  5. LIVACT (AMINO ACIDS NOS) [Concomitant]
  6. MUCOSTA (REBAMIPIDE) [Concomitant]
  7. SLOW-K [Concomitant]
  8. STRONG NEO-MINOPHAGEN C (CYSTEINE, AMINOACETIC ACID GLYCYRRHIZIC ACID) [Concomitant]
  9. PROHEPARUM (CYSTEINE, CYANOCOBALAMIN, CHOLINE BITARTRATE, INOSITOL, LI [Concomitant]
  10. LASIX [Concomitant]
  11. ALDACTONE [Concomitant]

REACTIONS (5)
  - ASCITES [None]
  - FACE OEDEMA [None]
  - HYPOPROTEINAEMIA [None]
  - OEDEMA PERIPHERAL [None]
  - TRANSAMINASES INCREASED [None]
